FAERS Safety Report 7998880-6 (Version None)
Quarter: 2011Q4

REPORT INFORMATION
  Report Type: 
  Country: None (occurrence: None)
  Receive Date: 20111221
  Receipt Date: 20111219
  Transmission Date: 20120403
  Serious: Yes (Other)
  Sender: FDA-Public Use
  Company Number: US-GLAXOSMITHKLINE-A0958643A

PATIENT
  Age: 76 Year
  Sex: Male

DRUGS (6)
  1. OMEPRAZOLE [Concomitant]
  2. SYNTHROID [Concomitant]
  3. TOPROL-XL [Concomitant]
  4. BENICAR [Concomitant]
  5. VOTRIENT [Suspect]
     Indication: RENAL CANCER
     Dosage: 800MG PER DAY
     Route: 048
     Dates: start: 20101201, end: 20111217
  6. AMLODIPINE [Concomitant]

REACTIONS (4)
  - INCREASED UPPER AIRWAY SECRETION [None]
  - COUGH [None]
  - PNEUMONITIS [None]
  - LUNG DISORDER [None]
